FAERS Safety Report 9878088 (Version 4)
Quarter: 2014Q2

REPORT INFORMATION
  Report Type: Spontaneous
  Country: US (occurrence: None)
  Receive Date: 20140204
  Receipt Date: 20140401
  Transmission Date: 20141212
  Serious: Yes (Hospitalization)
  Sender: FDA-Public Use
  Company Number: 2014-US-000857

PATIENT
  Age: 67 Year
  Sex: Female

DRUGS (3)
  1. PRIALT [Suspect]
     Indication: SPINAL PAIN
     Dosage: UNK UG, QH, INTRATHECAL?
     Route: 037
  2. MORPHINE SULFATE [Suspect]
     Indication: SPINAL PAIN
     Dosage: UNK, MG, QH, INTRATHECAL
     Route: 037
  3. FENTANYL (FENTANYL CITRATE) [Suspect]
     Indication: SPINAL PAIN

REACTIONS (7)
  - Device issue [None]
  - Pelvic fracture [None]
  - Adverse reaction [None]
  - Rib fracture [None]
  - Thoracic vertebral fracture [None]
  - Diarrhoea [None]
  - Rales [None]
